FAERS Safety Report 15257845 (Version 1)
Quarter: 2018Q3

REPORT INFORMATION
  Report Type: Report from Study
  Country: None (occurrence: US)
  Receive Date: 20180808
  Receipt Date: 20180808
  Transmission Date: 20181010
  Serious: Yes (Other)
  Sender: FDA-Public Use
  Company Number: US-ABBVIE-16K-163-1723804-00

PATIENT
  Age: 70 Year
  Sex: Female

DRUGS (1)
  1. HUMIRA [Suspect]
     Active Substance: ADALIMUMAB
     Indication: RHEUMATOID ARTHRITIS
     Route: 058
     Dates: start: 20150221

REACTIONS (8)
  - Pathological fracture [Recovering/Resolving]
  - Back pain [Recovered/Resolved]
  - Fall [Recovered/Resolved]
  - Blood calcium decreased [Not Recovered/Not Resolved]
  - Sciatica [Unknown]
  - Vitamin D decreased [Not Recovered/Not Resolved]
  - Fall [Unknown]
  - Intervertebral disc degeneration [Unknown]

NARRATIVE: CASE EVENT DATE: 201609
